FAERS Safety Report 5967265-6 (Version None)
Quarter: 2008Q4

REPORT INFORMATION
  Report Type: 
  Country: None (occurrence: None)
  Receive Date: 20081125
  Receipt Date: 20081124
  Transmission Date: 20090506
  Serious: Yes (Hospitalization)
  Sender: FDA-Public Use
  Company Number: GB-ABBOTT-08P-167-0489323-00

PATIENT
  Age: 39 Year
  Sex: Female

DRUGS (5)
  1. CLARITHROMYCIN [Suspect]
     Indication: DRUG USE FOR UNKNOWN INDICATION
     Dates: start: 20080606
  2. PREDNISOLONE SODIUM PHOSPHATE [Suspect]
     Indication: LOWER RESPIRATORY TRACT INFECTION
     Dates: start: 20080529, end: 20080615
  3. PREDNISOLONE SODIUM PHOSPHATE [Suspect]
     Indication: BRONCHOSPASM
  4. CHLORPROMAZINE [Concomitant]
     Indication: DRUG USE FOR UNKNOWN INDICATION
     Dosage: 25 MG; DOSE REDUCING
     Dates: start: 20080616, end: 20080630
  5. DIAZEPAM [Concomitant]
     Indication: EMOTIONAL DISTRESS
     Dates: start: 20080616, end: 20080630

REACTIONS (5)
  - AMNESIA [None]
  - APHASIA [None]
  - DEPRESSED LEVEL OF CONSCIOUSNESS [None]
  - DISORIENTATION [None]
  - ENCEPHALITIS VIRAL [None]
